FAERS Safety Report 21685229 (Version 1)
Quarter: 2022Q4

REPORT INFORMATION
  Report Type: Spontaneous
  Country: US (occurrence: US)
  Receive Date: 20221206
  Receipt Date: 20221206
  Transmission Date: 20230113
  Serious: Yes (Other)
  Sender: FDA-Public Use
  Company Number: US-AMGEN-USASP2022209290

PATIENT

DRUGS (2)
  1. RITUXIMAB [Suspect]
     Active Substance: RITUXIMAB
     Indication: Glomerulonephritis minimal lesion
     Dosage: UNK (2-4 WEEK INTERVALS)
     Route: 065
  2. PREDNISONE [Concomitant]
     Active Substance: PREDNISONE
     Indication: Glomerulonephritis minimal lesion
     Dosage: 1 MILLIGRAM/KG (HIGH-DOSE)
     Route: 065

REACTIONS (3)
  - Glomerulonephritis minimal lesion [Unknown]
  - Drug effective for unapproved indication [Unknown]
  - Off label use [Unknown]
